FAERS Safety Report 23063531 (Version 2)
Quarter: 2023Q4

REPORT INFORMATION
  Report Type: Spontaneous
  Country: IT (occurrence: IT)
  Receive Date: 20231013
  Receipt Date: 20231018
  Transmission Date: 20240110
  Serious: Yes (Other)
  Sender: FDA-Public Use
  Company Number: None

PATIENT
  Age: 65 Year
  Sex: Male
  Weight: 81 kg

DRUGS (4)
  1. GLICLAZIDE [Suspect]
     Active Substance: GLICLAZIDE
     Indication: Type 2 diabetes mellitus
     Dosage: 60 MILLIGRAM, QD
     Route: 048
     Dates: start: 2017
  2. METFORMIN [Suspect]
     Active Substance: METFORMIN HYDROCHLORIDE
     Indication: Type 2 diabetes mellitus
     Dosage: 1000 MILLIGRAM, QD, IN EVENING
     Route: 048
     Dates: start: 2016
  3. RILPIVIRINE [Suspect]
     Active Substance: RILPIVIRINE
     Indication: Blood HIV RNA below assay limit
     Dosage: 1 DOSAGE FORM, BIMONTHLY
     Route: 030
     Dates: start: 20230119, end: 20230626
  4. CABOTEGRAVIR [Suspect]
     Active Substance: CABOTEGRAVIR
     Indication: Blood HIV RNA below assay limit
     Dosage: 1 DOSAGE FORM, BIMONTHLY
     Route: 030
     Dates: start: 20230119, end: 20230626

REACTIONS (1)
  - Diabetes mellitus [Recovered/Resolved]

NARRATIVE: CASE EVENT DATE: 20230119
